FAERS Safety Report 7909154 (Version 3)
Quarter: 2013Q2

REPORT INFORMATION
  Report Type: Spontaneous
  Country: US (occurrence: US)
  Receive Date: 20110421
  Receipt Date: 20130402
  Transmission Date: 20140414
  Serious: No
  Sender: FDA-Public Use
  Company Number: US-ASTRAZENECA-2010SE53697

PATIENT
  Age: 89 Year
  Sex: Female
  Weight: 63 kg

DRUGS (7)
  1. TOPROL XL [Suspect]
     Indication: BLOOD PRESSURE
     Route: 048
  2. TOPROL XL [Suspect]
     Indication: BLOOD PRESSURE
     Route: 048
  3. LIPITOR [Suspect]
     Route: 065
  4. LIPITOR [Suspect]
     Dosage: GENERIC
     Route: 065
  5. BLOOD PRESSURE MEDICATION [Suspect]
     Route: 065
  6. LASIX [Concomitant]
  7. ECOTRIN [Concomitant]

REACTIONS (9)
  - Oral disorder [Unknown]
  - Stomatitis [Recovered/Resolved]
  - Tongue ulceration [Unknown]
  - Glossitis [Unknown]
  - Body height decreased [Unknown]
  - Adverse event [Unknown]
  - Multiple allergies [Unknown]
  - Dry mouth [Unknown]
  - Off label use [Unknown]
